FAERS Safety Report 8006606-5 (Version None)
Quarter: 2011Q4

REPORT INFORMATION
  Report Type: 
  Country: None (occurrence: None)
  Receive Date: 20111130
  Receipt Date: 20111118
  Transmission Date: 20120403
  Serious: Yes (Hospitalization)
  Sender: FDA-Public Use
  Company Number: 18140

PATIENT
  Sex: Female
  Weight: 54.4316 kg

DRUGS (9)
  1. VENTOLIN [Concomitant]
  2. CRESTOR [Concomitant]
  3. LANSOPLAZOLE [Concomitant]
  4. ACTONEL [Concomitant]
  5. WARFARIN SODIUM [Concomitant]
  6. LISINOPRIL [Concomitant]
  7. SPRIVIRA [Concomitant]
  8. OXYGEN [Concomitant]
  9. GLASSIA [Suspect]
     Indication: ALPHA-1 ANTI-TRYPSIN DEFICIENCY
     Dosage: 3463MG, WEEKLY, IV
     Route: 042
     Dates: start: 20110415, end: 20111028

REACTIONS (9)
  - PRURITUS [None]
  - INCREASED UPPER AIRWAY SECRETION [None]
  - INFUSION RELATED REACTION [None]
  - NAUSEA [None]
  - MUSCULAR WEAKNESS [None]
  - VOMITING [None]
  - DEHYDRATION [None]
  - HEADACHE [None]
  - DYSSTASIA [None]
